FAERS Safety Report 18227935 (Version 2)
Quarter: 2021Q1

REPORT INFORMATION
  Report Type: Spontaneous
  Country: US (occurrence: US)
  Receive Date: 20200903
  Receipt Date: 20210120
  Transmission Date: 20210419
  Serious: Yes (Death, Other)
  Sender: FDA-Public Use
  Company Number: US-PFIZER INC-2020340788

PATIENT
  Age: 19 Year
  Sex: Female
  Weight: 119.22 kg

DRUGS (15)
  1. HYOSCINE [Suspect]
     Active Substance: SCOPOLAMINE
     Indication: PEPTIC ULCER
     Dosage: UNK
  2. HYOSCINE [Suspect]
     Active Substance: SCOPOLAMINE
     Indication: GASTRITIS
  3. MAGNESIUM SULFATE. [Suspect]
     Active Substance: MAGNESIUM SULFATE
     Dosage: UNK
  4. MYLANTA [Suspect]
     Active Substance: ALUMINUM HYDROXIDE\DIMETHICONE\MAGNESIUM HYDROXIDE
     Indication: GASTRITIS
  5. RANITIDINE. [Suspect]
     Active Substance: RANITIDINE
     Indication: PEPTIC ULCER
  6. AMOXICILLIN. [Suspect]
     Active Substance: AMOXICILLIN
     Indication: GASTRITIS
  7. NIFEDIPINE. [Suspect]
     Active Substance: NIFEDIPINE
     Indication: BLOOD PRESSURE MANAGEMENT
     Dosage: 10 MG
     Route: 042
  8. CEFMETAZOLE [Suspect]
     Active Substance: CEFMETAZOLE
     Dosage: UNK
     Route: 042
  9. CEFOTETAN [Suspect]
     Active Substance: CEFOTETAN DISODIUM
     Dosage: 1 G
     Route: 042
  10. RANITIDINE. [Suspect]
     Active Substance: RANITIDINE
     Indication: GASTRITIS
     Dosage: UNK
  11. GLYCOPYRROLATE [GLYCOPYRRONIUM BROMIDE] [Suspect]
     Active Substance: GLYCOPYRROLATE
     Dosage: 0.2 MG
     Route: 042
  12. MEPERIDINE HCL [Suspect]
     Active Substance: MEPERIDINE HYDROCHLORIDE
     Dosage: 50 MG
     Route: 042
  13. MYLANTA [Suspect]
     Active Substance: ALUMINUM HYDROXIDE\DIMETHICONE\MAGNESIUM HYDROXIDE
     Indication: PEPTIC ULCER
     Dosage: UNK
  14. HYDROXYZINE [Suspect]
     Active Substance: HYDROXYZINE HYDROCHLORIDE
     Indication: ABDOMINAL PAIN
     Dosage: 25 MG
     Route: 042
  15. AMOXICILLIN. [Suspect]
     Active Substance: AMOXICILLIN
     Indication: PEPTIC ULCER

REACTIONS (1)
  - Stillbirth [Fatal]
